FAERS Safety Report 4979434-2 (Version None)
Quarter: 2006Q2

REPORT INFORMATION
  Report Type: 
  Country: None (occurrence: None)
  Receive Date: 20060421
  Receipt Date: 20051130
  Transmission Date: 20061013
  Serious: Yes (Hospitalization, Other)
  Sender: FDA-Public Use
  Company Number: US-MERCK-0512USA00256

PATIENT
  Age: 78 Year
  Sex: Female
  Weight: 77 kg

DRUGS (2)
  1. VIOXX [Suspect]
     Indication: ARTHRITIS
     Route: 048
     Dates: start: 20001115, end: 20030228
  2. TYLENOL (CAPLET) [Concomitant]
     Route: 065

REACTIONS (6)
  - ADVERSE EVENT [None]
  - ARTHROPATHY [None]
  - CATARACT [None]
  - CEREBROVASCULAR ACCIDENT [None]
  - HYPERTENSION [None]
  - ISCHAEMIC STROKE [None]
